FAERS Safety Report 6255151-6 (Version None)
Quarter: 2009Q3

REPORT INFORMATION
  Report Type: 
  Country: None (occurrence: None)
  Receive Date: 20090702
  Receipt Date: 20090622
  Transmission Date: 20100115
  Serious: Yes (Hospitalization)
  Sender: FDA-Public Use
  Company Number: PHHY2009JP15117

PATIENT
  Sex: Male
  Weight: 48 kg

DRUGS (14)
  1. DIOVAN [Suspect]
     Indication: HYPERTENSION
     Dosage: 80 MG, QD
     Route: 048
     Dates: start: 20060802, end: 20070225
  2. DIOVAN [Suspect]
     Dosage: 160 MG, QD
     Route: 048
     Dates: start: 20070226, end: 20090206
  3. ASPIRIN [Concomitant]
     Indication: CORONARY ARTERY BYPASS
     Dosage: 100 MG, UNK
     Route: 048
     Dates: start: 20060802, end: 20090208
  4. PANALDINE [Concomitant]
     Indication: CORONARY ARTERY BYPASS
     Dosage: 200 MG, UNK
     Route: 048
     Dates: start: 20090206
  5. CALCIUM POLYSTYRENE SULFONATE [Concomitant]
     Dosage: 25 MG, UNK
     Route: 048
     Dates: start: 20090210
  6. CALCIUM POLYSTYRENE SULFONATE [Concomitant]
     Dosage: 25 MG, UNK
     Route: 048
  7. CALCIUM POLYSTYRENE SULFONATE [Concomitant]
     Dosage: UNK
  8. TENORMIN [Concomitant]
     Indication: ARRHYTHMIA
     Dosage: 50 MG, UNK
     Route: 048
     Dates: start: 20081025
  9. LASIX [Concomitant]
     Indication: OEDEMA
     Dosage: 20 MG, UNK
     Route: 048
     Dates: start: 20090203
  10. FERROMIA [Concomitant]
     Indication: ANAEMIA
     Dosage: 50 MG, UNK
     Route: 048
     Dates: start: 20060802
  11. GASTER D [Concomitant]
     Indication: GASTRITIS
     Dosage: 20 MG, UNK
     Route: 048
     Dates: start: 20060802
  12. ADALAT CC [Concomitant]
     Indication: HYPERTENSION
     Dosage: 40 MG, UNK
     Route: 048
     Dates: start: 20080321
  13. ADALAT [Concomitant]
     Indication: HYPERTENSION
     Dosage: 20 MG, UNK
     Route: 048
     Dates: start: 20090226
  14. ZYLORIC [Concomitant]
     Indication: HYPERURICAEMIA
     Dosage: 600 MG, UNK
     Route: 048
     Dates: start: 20090206

REACTIONS (8)
  - ATRIOVENTRICULAR BLOCK FIRST DEGREE [None]
  - BLOOD CREATININE INCREASED [None]
  - BLOOD GLUCOSE INCREASED [None]
  - BLOOD SODIUM DECREASED [None]
  - BLOOD URIC ACID INCREASED [None]
  - ELECTROCARDIOGRAM QT PROLONGED [None]
  - HYPERKALAEMIA [None]
  - OEDEMA PERIPHERAL [None]
